FAERS Safety Report 24825495 (Version 1)
Quarter: 2025Q1

REPORT INFORMATION
  Report Type: Spontaneous
  Country: GB (occurrence: GB)
  Receive Date: 20250109
  Receipt Date: 20250109
  Transmission Date: 20250409
  Serious: Yes (Death, Hospitalization)
  Sender: MYLAN
  Company Number: GB-MYLANLABS-2025M1002366

PATIENT
  Sex: Female

DRUGS (1)
  1. CLOZARIL [Suspect]
     Active Substance: CLOZAPINE
     Indication: Schizophrenia
     Route: 048
     Dates: start: 20091101

REACTIONS (2)
  - Neoplasm malignant [Fatal]
  - Malaise [Unknown]
